FAERS Safety Report 5922272-4 (Version None)
Quarter: 2008Q3

REPORT INFORMATION
  Report Type: 
  Country: None (occurrence: None)
  Receive Date: 20080909
  Receipt Date: 20080603
  Transmission Date: 20090109
  Serious: Yes (Hospitalization)
  Sender: FDA-Public Use
  Company Number: 163-20785-08060212

PATIENT
  Age: 78 Year
  Sex: Female

DRUGS (3)
  1. THALOMID [Suspect]
     Indication: MULTIPLE MYELOMA
     Dosage: 100 MG, 2 IN 1 D, ORAL; 150 MG, QD, ORAL; 100 MG, QD, ORAL
     Route: 048
     Dates: start: 20021017
  2. THALOMID [Suspect]
     Indication: MULTIPLE MYELOMA
     Dosage: 100 MG, 2 IN 1 D, ORAL; 150 MG, QD, ORAL; 100 MG, QD, ORAL
     Route: 048
     Dates: start: 20030130
  3. THALOMID [Suspect]
     Indication: MULTIPLE MYELOMA
     Dosage: 100 MG, 2 IN 1 D, ORAL; 150 MG, QD, ORAL; 100 MG, QD, ORAL
     Route: 048
     Dates: start: 20070727

REACTIONS (2)
  - CHEST PAIN [None]
  - TRANSIENT ISCHAEMIC ATTACK [None]
